FAERS Safety Report 4634557-2 (Version None)
Quarter: 2005Q2

REPORT INFORMATION
  Report Type: 
  Country: None (occurrence: None)
  Receive Date: 20050411
  Receipt Date: 20050330
  Transmission Date: 20051028
  Serious: Yes (Other)
  Sender: FDA-Public Use
  Company Number: JP-2005-004479

PATIENT
  Age: 80 Year
  Sex: Female

DRUGS (1)
  1. PROSCOPE              (IOPROMIDE) [Suspect]
     Indication: COMPUTERISED TOMOGRAM
     Dosage: 1 DOSE, INTRAVENOUS
     Route: 042
     Dates: start: 20050317, end: 20050317

REACTIONS (1)
  - SHOCK [None]
